FAERS Safety Report 7014108-8 (Version None)
Quarter: 2010Q3

REPORT INFORMATION
  Report Type: 
  Country: None (occurrence: None)
  Receive Date: 20100927
  Receipt Date: 20100917
  Transmission Date: 20110219
  Serious: Yes (Other)
  Sender: FDA-Public Use
  Company Number: US-US-EMD SERONO, INC.-7016665

PATIENT
  Sex: Female

DRUGS (7)
  1. REBIF [Suspect]
     Indication: PRODUCT USED FOR UNKNOWN INDICATION
     Dates: start: 20051104, end: 20070101
  2. REBIF [Suspect]
     Dates: start: 20090401
  3. REBIF [Suspect]
     Route: 058
     Dates: start: 20100409, end: 20100501
  4. REBIF [Suspect]
     Route: 058
     Dates: start: 20100101, end: 20100701
  5. REBIF [Suspect]
     Dates: start: 20100906
  6. ADVIL LIQUI-GELS [Concomitant]
     Indication: PREMEDICATION
  7. TYLENOL [Concomitant]
     Indication: PREMEDICATION

REACTIONS (4)
  - ABORTION SPONTANEOUS [None]
  - DRUG EXPOSURE DURING PREGNANCY [None]
  - INJECTION SITE PAIN [None]
  - INTENTIONAL DRUG MISUSE [None]
